FAERS Safety Report 5452124-8 (Version None)
Quarter: 2007Q3

REPORT INFORMATION
  Report Type: 
  Country: None (occurrence: None)
  Receive Date: 20070912
  Receipt Date: 20070829
  Transmission Date: 20080115
  Serious: Yes (Hospitalization)
  Sender: FDA-Public Use
  Company Number: POMP-11133

PATIENT
  Age: 10 Year
  Sex: Female
  Weight: 27.7 kg

DRUGS (3)
  1. MYOZYME [Suspect]
     Indication: GLYCOGEN STORAGE DISEASE TYPE II
     Dates: start: 20060601
  2. ALPHA-GLUCOSIDASE (HUMAN, RECOMBINANT, CHO CELLS, GENZYME). MFR: GENZY [Suspect]
     Indication: GLYCOGEN STORAGE DISEASE TYPE II
     Dosage: 20 MG/KG Q2WKS IV
     Route: 042
     Dates: start: 20040914, end: 20060530
  3. PULMICORT [Concomitant]

REACTIONS (5)
  - BACTERIAL INFECTION [None]
  - CONDITION AGGRAVATED [None]
  - CULTURE POSITIVE [None]
  - POSTOPERATIVE WOUND INFECTION [None]
  - SCOLIOSIS [None]
